FAERS Safety Report 18124129 (Version 1)
Quarter: 2020Q3

REPORT INFORMATION
  Report Type: Spontaneous
  Country: CA (occurrence: CA)
  Receive Date: 20200807
  Receipt Date: 20200807
  Transmission Date: 20201103
  Serious: Yes (Other)
  Sender: FDA-Public Use
  Company Number: CA-009507513-2007CAN011970

PATIENT
  Age: 56 Year
  Sex: Female

DRUGS (1)
  1. TEMODAL [Suspect]
     Active Substance: TEMOZOLOMIDE
     Dosage: 120.0 MILLIGRAM, 5 EVERY 1 MONTHS
     Route: 048

REACTIONS (3)
  - Product supply issue [Unknown]
  - Therapeutic product effect increased [Unknown]
  - Product substitution issue [Unknown]
